FAERS Safety Report 5092408-9 (Version None)
Quarter: 2006Q3

REPORT INFORMATION
  Report Type: 
  Country: None (occurrence: None)
  Receive Date: 20060825
  Receipt Date: 20060817
  Transmission Date: 20061208
  Serious: Yes (Other)
  Sender: FDA-Public Use
  Company Number: 2006100155

PATIENT
  Sex: Female

DRUGS (1)
  1. UNISOM [Suspect]
     Dosage: 10 TABLETS ONCE, ORAL
     Route: 048
     Dates: start: 20060817, end: 20060817

REACTIONS (4)
  - EYE MOVEMENT DISORDER [None]
  - INCORRECT DOSE ADMINISTERED [None]
  - SYNCOPE [None]
  - VOMITING [None]
